FAERS Safety Report 25454702 (Version 4)
Quarter: 2025Q3

REPORT INFORMATION
  Report Type: Report from Study
  Country: US (occurrence: US)
  Receive Date: 20250619
  Receipt Date: 20250821
  Transmission Date: 20251021
  Serious: Yes (Other)
  Sender: SUNOVION
  Company Number: US-SMPA-2025SPA006648

PATIENT
  Age: 67 Year
  Sex: Male

DRUGS (7)
  1. ORGOVYX [Suspect]
     Active Substance: RELUGOLIX
     Indication: Prostate cancer
     Dosage: 360 MG, SINGLE
     Route: 048
     Dates: start: 20250501, end: 20250501
  2. ORGOVYX [Suspect]
     Active Substance: RELUGOLIX
     Dosage: 120 MG, QD
     Route: 048
     Dates: start: 20250502
  3. LEVOTHYROXINE SODIUM [Concomitant]
     Active Substance: LEVOTHYROXINE SODIUM
  4. ROSUVASTATIN CALCIUM [Concomitant]
     Active Substance: ROSUVASTATIN CALCIUM
  5. TADALAFIL [Concomitant]
     Active Substance: TADALAFIL
  6. METHOCARBAMOL [Concomitant]
     Active Substance: METHOCARBAMOL
  7. NAPROXEN [Concomitant]
     Active Substance: NAPROXEN

REACTIONS (5)
  - Accident [Unknown]
  - Erectile dysfunction [Unknown]
  - Muscle strain [Recovering/Resolving]
  - Fatigue [Unknown]
  - Hot flush [Unknown]
